FAERS Safety Report 5290315-X (Version None)
Quarter: 2007Q2

REPORT INFORMATION
  Report Type: 
  Country: None (occurrence: None)
  Receive Date: 20070409
  Receipt Date: 20070404
  Transmission Date: 20071010
  Serious: Yes (Other)
  Sender: FDA-Public Use
  Company Number: CH-JNJFOC-20070400534

PATIENT
  Age: 7 Year
  Sex: Male
  Weight: 32 kg

DRUGS (2)
  1. RISPERDAL [Suspect]
     Indication: AGITATION
     Route: 048
  2. RISPERDAL [Suspect]
     Indication: ANXIETY
     Route: 048

REACTIONS (3)
  - DRUG ADMINISTRATION ERROR [None]
  - INCORRECT DOSE ADMINISTERED [None]
  - SOMNOLENCE [None]
